FAERS Safety Report 20800359 (Version 1)
Quarter: 2022Q2

REPORT INFORMATION
  Report Type: Spontaneous
  Country: US (occurrence: US)
  Receive Date: 20220509
  Receipt Date: 20220509
  Transmission Date: 20220721
  Serious: Yes (Other)
  Sender: FDA-Public Use
  Company Number: US-drreddys-LIT/USA/22/0149723

PATIENT
  Sex: Female

DRUGS (10)
  1. SUMATRIPTAN SUCCINATE [Suspect]
     Active Substance: SUMATRIPTAN SUCCINATE
     Indication: Sphincter of Oddi dysfunction
  2. TIZANIDINE HYDROCHLORIDE [Suspect]
     Active Substance: TIZANIDINE HYDROCHLORIDE
     Indication: Sphincter of Oddi dysfunction
  3. LORAZEPAM [Suspect]
     Active Substance: LORAZEPAM
     Indication: Sphincter of Oddi dysfunction
  4. PREGABALIN [Suspect]
     Active Substance: PREGABALIN
     Indication: Sphincter of Oddi dysfunction
  5. DULOXETINE [Suspect]
     Active Substance: DULOXETINE
     Indication: Sphincter of Oddi dysfunction
  6. AMITRIPTYLINE [Suspect]
     Active Substance: AMITRIPTYLINE
     Indication: Sphincter of Oddi dysfunction
  7. DOXEPIN [Suspect]
     Active Substance: DOXEPIN
     Indication: Sphincter of Oddi dysfunction
  8. BACLOFEN [Suspect]
     Active Substance: BACLOFEN
     Indication: Sphincter of Oddi dysfunction
  9. TRAMADOL [Suspect]
     Active Substance: TRAMADOL
     Indication: Sphincter of Oddi dysfunction
  10. LIDOCAINE [Suspect]
     Active Substance: LIDOCAINE
     Indication: Sphincter of Oddi dysfunction

REACTIONS (1)
  - Drug ineffective [Unknown]
